FAERS Safety Report 17914737 (Version 1)
Quarter: 2020Q2

REPORT INFORMATION
  Report Type: Spontaneous
  Country: SE (occurrence: SE)
  Receive Date: 20200619
  Receipt Date: 20200619
  Transmission Date: 20200714
  Serious: Yes (Other)
  Sender: FDA-Public Use
  Company Number: SE-TEVA-2020-SE-1788232

PATIENT
  Sex: Female

DRUGS (4)
  1. HEMINEVRIN [Concomitant]
     Active Substance: CLOMETHIAZOLE
  2. OXASCAND [Concomitant]
     Active Substance: OXAZEPAM
     Dosage: VB
  3. DONEPEZIL. [Suspect]
     Active Substance: DONEPEZIL
     Indication: DEMENTIA
     Dosage: 10 MG
     Dates: end: 20200528
  4. ALVEDON [Concomitant]
     Active Substance: ACETAMINOPHEN
     Dosage: VB

REACTIONS (1)
  - Sleep disorder [Not Recovered/Not Resolved]
